FAERS Safety Report 4857584-9 (Version None)
Quarter: 2005Q4

REPORT INFORMATION
  Report Type: 
  Country: None (occurrence: None)
  Receive Date: 20051219
  Receipt Date: 20050523
  Transmission Date: 20060501
  Serious: No
  Sender: FDA-Public Use
  Company Number: US-GLAXOSMITHKLINE-A0559673A

PATIENT
  Age: 22 Year
  Sex: Male

DRUGS (1)
  1. EQUATE NTS 21MG [Suspect]
     Dates: start: 20050518, end: 20050521

REACTIONS (7)
  - DIZZINESS [None]
  - FEELING COLD [None]
  - HEART RATE INCREASED [None]
  - HOT FLUSH [None]
  - HYPOAESTHESIA [None]
  - IRRITABILITY [None]
  - NAUSEA [None]
